FAERS Safety Report 21832335 (Version 2)
Quarter: 2023Q1

REPORT INFORMATION
  Report Type: Spontaneous
  Country: US (occurrence: US)
  Receive Date: 20230106
  Receipt Date: 20230111
  Transmission Date: 20230418
  Serious: Yes (Other)
  Sender: FDA-Public Use
  Company Number: US-MYLANLABS-2022M1141021

PATIENT
  Age: 36 Year
  Sex: Male

DRUGS (13)
  1. GABAPENTIN [Suspect]
     Active Substance: GABAPENTIN
     Indication: Trigeminal neuropathy
     Dosage: 600 MILLIGRAM, Q8H(DAY:1,2,4,7,10)
     Route: 048
  2. GABAPENTIN [Suspect]
     Active Substance: GABAPENTIN
     Indication: Herpes zoster
  3. LIDOCAINE HYDROCHLORIDE [Suspect]
     Active Substance: LIDOCAINE HYDROCHLORIDE
     Indication: Trigeminal neuropathy
     Dosage: UNK, DOSAGE: EVERY 4-6 HOURS AS NEEDED(DAY:1,2,4)
     Route: 065
  4. LIDOCAINE HYDROCHLORIDE [Suspect]
     Active Substance: LIDOCAINE HYDROCHLORIDE
     Indication: Herpes zoster
  5. BACLOFEN [Suspect]
     Active Substance: BACLOFEN
     Indication: Trigeminal neuropathy
     Dosage: 10 MILLIGRAM, Q8H(DAY 7,10)
     Route: 048
  6. BACLOFEN [Suspect]
     Active Substance: BACLOFEN
     Indication: Herpes zoster
  7. NORTRIPTYLINE [Suspect]
     Active Substance: NORTRIPTYLINE
     Indication: Trigeminal neuropathy
     Dosage: 25 MILLIGRAM, BID (EVERY 12 HOURS)(DAY:7,10)
     Route: 048
  8. NORTRIPTYLINE [Suspect]
     Active Substance: NORTRIPTYLINE
     Indication: Herpes zoster
  9. OXCARBAZEPINE [Suspect]
     Active Substance: OXCARBAZEPINE
     Indication: Trigeminal neuropathy
     Dosage: 150 MILLIGRAM, BID (EVERY 12 HOURS)
     Route: 048
  10. OXCARBAZEPINE [Suspect]
     Active Substance: OXCARBAZEPINE
     Indication: Herpes zoster
  11. VALACYCLOVIR HYDROCHLORIDE [Concomitant]
     Active Substance: VALACYCLOVIR HYDROCHLORIDE
     Indication: Trigeminal neuropathy
     Dosage: 1 GRAM, Q8H(DAY1,2,4,7)
     Route: 048
  12. VALACYCLOVIR HYDROCHLORIDE [Concomitant]
     Active Substance: VALACYCLOVIR HYDROCHLORIDE
     Indication: Herpes zoster
  13. SERTRALINE [Concomitant]
     Active Substance: SERTRALINE HYDROCHLORIDE
     Indication: Anxiety
     Dosage: 100 MILLIGRAM, QID
     Route: 065

REACTIONS (2)
  - Angioedema [Recovered/Resolved with Sequelae]
  - Drug ineffective [Unknown]
